FAERS Safety Report 5775380-5 (Version None)
Quarter: 2008Q2

REPORT INFORMATION
  Report Type: 
  Country: None (occurrence: None)
  Receive Date: 20080617
  Receipt Date: 20080602
  Transmission Date: 20081010
  Serious: Yes (Other)
  Sender: FDA-Public Use
  Company Number: US-MERCK-0804USA06381

PATIENT
  Age: 8 Year
  Sex: Female
  Weight: 42 kg

DRUGS (7)
  1. SINGULAIR [Suspect]
     Indication: ASTHMA
     Route: 048
     Dates: start: 20080301, end: 20080101
  2. SINGULAIR [Suspect]
     Indication: HYPERSENSITIVITY
     Route: 048
     Dates: start: 20080301, end: 20080101
  3. NASONEX [Concomitant]
     Route: 065
  4. ALLEGRA [Concomitant]
     Indication: HYPERSENSITIVITY
     Route: 048
     Dates: start: 20071201
  5. OPTIVAR OPHTHALMIC SOLUTION [Concomitant]
     Route: 065
  6. XOPENEX [Concomitant]
     Indication: ASTHMA
     Route: 065
     Dates: start: 20071201
  7. PATADAY [Concomitant]
     Route: 047
     Dates: start: 20071201

REACTIONS (4)
  - AGGRESSION [None]
  - DEPRESSION [None]
  - SELF-INJURIOUS IDEATION [None]
  - SUICIDAL IDEATION [None]
